FAERS Safety Report 16067784 (Version 1)
Quarter: 2019Q1

REPORT INFORMATION
  Report Type: Report from Study
  Country: US (occurrence: US)
  Receive Date: 20190313
  Receipt Date: 20190313
  Transmission Date: 20190418
  Serious: Yes (Hospitalization)
  Sender: FDA-Public Use
  Company Number: US-JNJFOC-20181228194

PATIENT
  Sex: Male

DRUGS (2)
  1. STELARA [Suspect]
     Active Substance: USTEKINUMAB
     Indication: CROHN^S DISEASE
     Dosage: SUB CUTANEOUS DOSAGE FORM.
     Route: 042
     Dates: start: 20181102
  2. STELARA [Suspect]
     Active Substance: USTEKINUMAB
     Indication: CROHN^S DISEASE
     Route: 042
     Dates: start: 20190110

REACTIONS (9)
  - Osteoporosis [Unknown]
  - Haemorrhage [Unknown]
  - Pneumonia [Recovered/Resolved]
  - Psoriasis [Unknown]
  - Abdominal pain [Not Recovered/Not Resolved]
  - Product dose omission [Unknown]
  - Vomiting [Not Recovered/Not Resolved]
  - Diarrhoea [Not Recovered/Not Resolved]
  - Rib fracture [Unknown]

NARRATIVE: CASE EVENT DATE: 2018
